FAERS Safety Report 6641132-7 (Version None)
Quarter: 2010Q1

REPORT INFORMATION
  Report Type: 
  Country: None (occurrence: None)
  Receive Date: 20100318
  Receipt Date: 20090430
  Transmission Date: 20100710
  Serious: No
  Sender: FDA-Public Use
  Company Number: US-ASTRAZENECA-2009UW10854

PATIENT
  Sex: Female

DRUGS (5)
  1. LISINOPRIL [Suspect]
     Route: 048
  2. SEROQUEL [Suspect]
     Route: 048
  3. PLAVIX [Concomitant]
  4. AMBIEN [Concomitant]
  5. SIMVASTATIN [Concomitant]

REACTIONS (1)
  - BLOOD PRESSURE INCREASED [None]
